FAERS Safety Report 4640928-0 (Version None)
Quarter: 2005Q2

REPORT INFORMATION
  Report Type: 
  Country: None (occurrence: None)
  Receive Date: 20050324
  Receipt Date: 20050210
  Transmission Date: 20051028
  Serious: No
  Sender: FDA-Public Use
  Company Number: 212416

PATIENT
  Age: 84 Year
  Sex: Female

DRUGS (1)
  1. AVASTIN [Suspect]
     Indication: COLORECTAL CANCER
     Dosage: 200 MG INTRAVENOUS
     Route: 042
     Dates: start: 20050210

REACTIONS (1)
  - INJECTION SITE REACTION [None]
